FAERS Safety Report 7350505-9 (Version None)
Quarter: 2011Q1

REPORT INFORMATION
  Report Type: 
  Country: None (occurrence: None)
  Receive Date: 20110314
  Receipt Date: 20110309
  Transmission Date: 20110831
  Serious: Yes (Hospitalization)
  Sender: FDA-Public Use
  Company Number: GB-PFIZER INC-2011052684

PATIENT
  Age: 29 Year
  Sex: Female

DRUGS (1)
  1. CHAMPIX [Suspect]
     Indication: SMOKING CESSATION THERAPY
     Dosage: 500 UG, 1X/DAY
     Route: 048
     Dates: start: 20110112, end: 20110119

REACTIONS (5)
  - POLLAKIURIA [None]
  - BACK PAIN [None]
  - PELVIC INFLAMMATORY DISEASE [None]
  - ABDOMINAL PAIN LOWER [None]
  - DYSURIA [None]
